FAERS Safety Report 14234968 (Version 2)
Quarter: 2019Q3

REPORT INFORMATION
  Report Type: Report from Study
  Country: US (occurrence: US)
  Receive Date: 20171129
  Receipt Date: 20190815
  Transmission Date: 20191004
  Serious: Yes (Other)
  Sender: FDA-Public Use
  Company Number: US-ROCHE-2030218

PATIENT

DRUGS (1)
  1. ALTEPLASE. [Suspect]
     Active Substance: ALTEPLASE
     Indication: ISCHAEMIC STROKE
     Dosage: BODY WEIGHT
     Route: 042

REACTIONS (3)
  - Accidental exposure to product [Unknown]
  - Haemorrhagic infarction [Unknown]
  - Petechiae [Unknown]
